FAERS Safety Report 18348273 (Version 1)
Quarter: 2020Q4

REPORT INFORMATION
  Report Type: Spontaneous
  Country: FR (occurrence: FR)
  Receive Date: 20201006
  Receipt Date: 20201006
  Transmission Date: 20210114
  Serious: Yes (Other)
  Sender: FDA-Public Use
  Company Number: FR-ACCORD-204226

PATIENT
  Age: 3 Year
  Sex: Male
  Weight: 17.1 kg

DRUGS (14)
  1. ONDANSETRON ACCORD [Suspect]
     Active Substance: ONDANSETRON
     Indication: PRODUCT USED FOR UNKNOWN INDICATION
     Route: 042
     Dates: start: 20200903, end: 20200907
  2. PROPOFOL LIPURO [Suspect]
     Active Substance: PROPOFOL
     Indication: INDUCTION OF ANAESTHESIA
     Route: 042
     Dates: start: 20200906, end: 20200907
  3. SEVORANE [Suspect]
     Active Substance: SEVOFLURANE
     Indication: INDUCTION OF ANAESTHESIA
     Route: 042
     Dates: start: 20200906
  4. RIVOTRIL [Concomitant]
     Active Substance: CLONAZEPAM
     Route: 042
     Dates: start: 20200903, end: 20200907
  5. BIONOLYTE G5 [Concomitant]
     Active Substance: DEXTROSE\POTASSIUM CHLORIDE\SODIUM CHLORIDE
  6. ANTITHYMOCYTE IMMUNOGLOBULIN [Concomitant]
     Active Substance: THYMOCYTE IMMUNE GLOBULIN NOS
     Route: 042
     Dates: start: 20200903, end: 20200906
  7. SUFENTANIL MYLAN [Suspect]
     Active Substance: SUFENTANIL
     Indication: INDUCTION OF ANAESTHESIA
     Route: 042
     Dates: start: 20200906, end: 20200907
  8. ZOVIRAX [Concomitant]
     Active Substance: ACYCLOVIR
     Route: 048
     Dates: start: 20200901, end: 20200907
  9. SODIUM BICARBONATE. [Concomitant]
     Active Substance: SODIUM BICARBONATE
  10. AMOXICILLIN AND CLAVULANATE POTASSIUM [Concomitant]
     Active Substance: AMOXICILLIN\CLAVULANATE POTASSIUM
     Dosage: 1 DOSE KG TOUTES LES 8 HEURES
     Route: 048
     Dates: start: 20200902, end: 20200907
  11. FUNGIZONE [Concomitant]
     Active Substance: AMPHOTERICIN B
  12. ELUDRIL PERIO [Concomitant]
  13. PLITICAN [Concomitant]
     Active Substance: ALIZAPRIDE HYDROCHLORIDE
     Route: 042
     Dates: start: 20200903, end: 20200907
  14. URSOFALK [Concomitant]
     Active Substance: URSODIOL
     Route: 048
     Dates: start: 20200901, end: 20200907

REACTIONS (2)
  - Symptom recurrence [Recovered/Resolved]
  - Arrhythmia [Recovered/Resolved]

NARRATIVE: CASE EVENT DATE: 20200906
